FAERS Safety Report 24703654 (Version 1)
Quarter: 2024Q4

REPORT INFORMATION
  Report Type: Spontaneous
  Country: GB (occurrence: GB)
  Receive Date: 20241206
  Receipt Date: 20241206
  Transmission Date: 20250114
  Serious: Yes (Other)
  Sender: ALKEM
  Company Number: GB-ALKEM LABORATORIES LIMITED-GB-ALKEM-2024-22697

PATIENT
  Age: 6 Year
  Sex: Female
  Weight: 20.7 kg

DRUGS (6)
  1. MYCOPHENOLATE MOFETIL [Suspect]
     Active Substance: MYCOPHENOLATE MOFETIL
     Indication: Immunosuppressant drug therapy
     Dosage: UNK
     Route: 065
  2. TACROLIMUS [Suspect]
     Active Substance: TACROLIMUS
     Indication: Immunosuppressant drug therapy
     Dosage: UNK
     Route: 065
  3. PREDNISONE [Suspect]
     Active Substance: PREDNISONE
     Indication: Immunosuppressant drug therapy
     Dosage: UNK
     Route: 065
  4. DAPAGLIFLOZIN [Concomitant]
     Active Substance: DAPAGLIFLOZIN
     Indication: Glycogen storage disease type I
     Dosage: 1.25 MILLIGRAM, BID
     Route: 048
  5. DAPAGLIFLOZIN [Concomitant]
     Active Substance: DAPAGLIFLOZIN
     Indication: Neutropenia
  6. VITAMIN E [Concomitant]
     Active Substance: .ALPHA.-TOCOPHEROL
     Indication: Glycogen storage disease type I
     Dosage: 600 MILLIGRAM, QD (HIGH DOSE)
     Route: 065

REACTIONS (6)
  - Otitis media chronic [Unknown]
  - Pneumonia [Unknown]
  - Anal abscess [Unknown]
  - Transplant rejection [Unknown]
  - Gastrointestinal disorder [Unknown]
  - Treatment noncompliance [Unknown]
